FAERS Safety Report 23901063 (Version 1)
Quarter: 2024Q2

REPORT INFORMATION
  Report Type: Spontaneous
  Country: US (occurrence: None)
  Receive Date: 20240526
  Receipt Date: 20240526
  Transmission Date: 20240715
  Serious: No
  Sender: FDA-Public Use
  Company Number: US-ROCHE-3389716

PATIENT
  Sex: Male
  Weight: 74.91 kg

DRUGS (11)
  1. OCREVUS [Suspect]
     Active Substance: OCRELIZUMAB
     Indication: Secondary progressive multiple sclerosis
     Route: 042
  2. ATORVASTATIN [Concomitant]
     Active Substance: ATORVASTATIN
  3. METOPROLOL SUCCINATE [Concomitant]
     Active Substance: METOPROLOL SUCCINATE
  4. PROVIGIL [Concomitant]
     Active Substance: MODAFINIL
  5. BACLOFEN [Concomitant]
     Active Substance: BACLOFEN
  6. ASPIRIN [Concomitant]
     Active Substance: ASPIRIN
  7. TADALAFIL [Concomitant]
     Active Substance: TADALAFIL
  8. MAGNESIUM OXIDE [Concomitant]
     Active Substance: MAGNESIUM OXIDE
  9. BIOTIN [Concomitant]
     Active Substance: BIOTIN
  10. COENZYME Q10 [Concomitant]
     Active Substance: DIETARY SUPPLEMENT\UBIDECARENONE
  11. CALCIUM [Concomitant]
     Active Substance: CALCIUM

REACTIONS (1)
  - Gait disturbance [Unknown]
